FAERS Safety Report 21534934 (Version 2)
Quarter: 2023Q1

REPORT INFORMATION
  Report Type: Spontaneous
  Country: DE (occurrence: DE)
  Receive Date: 20221101
  Receipt Date: 20230214
  Transmission Date: 20230417
  Serious: Yes (Hospitalization, Other)
  Sender: FDA-Public Use
  Company Number: DE-BRISTOL-MYERS SQUIBB COMPANY-2022-128994

PATIENT
  Age: 61 Year
  Sex: Female
  Weight: 74 kg

DRUGS (8)
  1. ELIQUIS [Suspect]
     Active Substance: APIXABAN
     Indication: Cerebrovascular accident prophylaxis
     Dosage: DOSE : 5 MG;     FREQ : TWICE DAILY, ONE IN THE MORNING AND ONE IN THE EVENING
     Route: 048
     Dates: start: 20190723
  2. ELIQUIS [Suspect]
     Active Substance: APIXABAN
  3. FLUTICASONE PROPIONATE\SALMETEROL XINAFOATE [Concomitant]
     Active Substance: FLUTICASONE PROPIONATE\SALMETEROL XINAFOATE
     Indication: Asthma
     Dosage: DOSAGE FORM: ASTHMA SPRAY, DAILY IN THE MORNING AND ONE INHALATION AT NIGHT?50/250 UG
     Route: 055
  4. RAMIPRIL [Concomitant]
     Active Substance: RAMIPRIL
     Indication: Hypertension
     Dosage: DAILY IN THE MORNING.
  5. UNSPECIFIED INGREDIENT [Concomitant]
     Active Substance: UNSPECIFIED INGREDIENT
     Indication: Product used for unknown indication
  6. METAMIZOLE [Concomitant]
     Active Substance: METAMIZOLE
     Indication: Product used for unknown indication
  7. NEBIVOLOL [Concomitant]
     Active Substance: NEBIVOLOL
     Indication: Product used for unknown indication
     Dosage: 2.50 IN MORNING
  8. PANTOPRAZOLE SODIUM [Concomitant]
     Active Substance: PANTOPRAZOLE SODIUM
     Indication: Product used for unknown indication
     Dosage: 40 MG IN MORNING

REACTIONS (3)
  - Gastrointestinal stromal tumour [Recovered/Resolved]
  - Gastric haemorrhage [Recovered/Resolved]
  - Iron deficiency anaemia [Unknown]

NARRATIVE: CASE EVENT DATE: 20210801
